FAERS Safety Report 7626239-X (Version None)
Quarter: 2011Q3

REPORT INFORMATION
  Report Type: 
  Country: None (occurrence: None)
  Receive Date: 20110721
  Receipt Date: 20110712
  Transmission Date: 20111222
  Serious: Yes (Hospitalization)
  Sender: FDA-Public Use
  Company Number: PHHY2010JP83339

PATIENT
  Age: 26 Year
  Sex: Female

DRUGS (2)
  1. VOLTAREN [Suspect]
     Indication: GINGIVAL PAIN
     Dosage: 1 DF, ONCE/SINGLE
     Route: 048
     Dates: start: 20101019, end: 20101020
  2. COLLAGEN [Concomitant]

REACTIONS (4)
  - HEPATITIS ACUTE [None]
  - ALANINE AMINOTRANSFERASE INCREASED [None]
  - CHOLECYSTOCHOLANGITIS [None]
  - ASPARTATE AMINOTRANSFERASE INCREASED [None]
